FAERS Safety Report 16442826 (Version 1)
Quarter: 2019Q2

REPORT INFORMATION
  Report Type: Spontaneous
  Country: US (occurrence: US)
  Receive Date: 20190617
  Receipt Date: 20190617
  Transmission Date: 20190711
  Serious: Yes (Death)
  Sender: FDA-Public Use
  Company Number: US-VIFOR (INTERNATIONAL) INC.-VIT-2019-05844

PATIENT
  Age: 80 Year
  Sex: Male

DRUGS (21)
  1. FLONASE [Concomitant]
     Active Substance: FLUTICASONE PROPIONATE
  2. TAMSULOSIN [Concomitant]
     Active Substance: TAMSULOSIN
  3. MELATONIN [Concomitant]
     Active Substance: MELATONIN
  4. SENNA [Concomitant]
     Active Substance: SENNA LEAF\SENNOSIDES\SENNOSIDES A AND B
  5. TEGRETOL [Concomitant]
     Active Substance: CARBAMAZEPINE
  6. FOLIC ACID. [Concomitant]
     Active Substance: FOLIC ACID
  7. VELTASSA [Suspect]
     Active Substance: PATIROMER
     Indication: HYPERKALAEMIA
     Route: 048
     Dates: start: 20190420
  8. ATORVASTATIN [Concomitant]
     Active Substance: ATORVASTATIN
  9. BABY ASPIRIN [Concomitant]
     Active Substance: ASPIRIN
  10. CITALOPRAM [Concomitant]
     Active Substance: CITALOPRAM HYDROBROMIDE
  11. HYDRALAZINE [Concomitant]
     Active Substance: HYDRALAZINE HYDROCHLORIDE
  12. SODIUM BICARBONATE. [Concomitant]
     Active Substance: SODIUM BICARBONATE
  13. VITAMIN B12 [Concomitant]
     Active Substance: CYANOCOBALAMIN
  14. CARVEDILOL. [Concomitant]
     Active Substance: CARVEDILOL
  15. NIFEDIPINE. [Concomitant]
     Active Substance: NIFEDIPINE
  16. DOCUSATE [Concomitant]
     Active Substance: DOCUSATE
  17. ISOSORBIDE DINITRATE. [Concomitant]
     Active Substance: ISOSORBIDE DINITRATE
  18. LACTULOSE. [Concomitant]
     Active Substance: LACTULOSE
  19. POLYETHYLENE GLYCOL [Concomitant]
     Active Substance: POLYETHYLENE GLYCOLS
  20. TORSEMIDE. [Concomitant]
     Active Substance: TORSEMIDE
  21. VENTOLIN [Concomitant]
     Active Substance: ALBUTEROL SULFATE
     Route: 055

REACTIONS (1)
  - Death [Fatal]

NARRATIVE: CASE EVENT DATE: 2019
